FAERS Safety Report 6679224-9 (Version None)
Quarter: 2010Q2

REPORT INFORMATION
  Report Type: 
  Country: None (occurrence: None)
  Receive Date: 20100409
  Receipt Date: 20100325
  Transmission Date: 20101027
  Serious: No
  Sender: FDA-Public Use
  Company Number: SPI201000092

PATIENT
  Age: 51 Year
  Sex: Female

DRUGS (2)
  1. AMITIZA [Suspect]
     Indication: CONSTIPATION
     Dosage: 24 MCG, SINGLE, ORAL; 24 MCG, BID, ORAL
     Route: 048
     Dates: start: 20091101, end: 20091101
  2. AMITIZA [Suspect]
     Indication: CONSTIPATION
     Dosage: 24 MCG, SINGLE, ORAL; 24 MCG, BID, ORAL
     Route: 048
     Dates: start: 20100301, end: 20100301

REACTIONS (3)
  - ABDOMINAL PAIN [None]
  - DIZZINESS [None]
  - DYSPNOEA [None]
